FAERS Safety Report 16254798 (Version 1)
Quarter: 2019Q2

REPORT INFORMATION
  Report Type: Spontaneous
  Country: FR (occurrence: FR)
  Receive Date: 20190430
  Receipt Date: 20190430
  Transmission Date: 20190711
  Serious: Yes (Hospitalization, Other)
  Sender: FDA-Public Use
  Company Number: FR-AUROBINDO-AUR-APL-2019-024469

PATIENT

DRUGS (6)
  1. VALIUM [Suspect]
     Active Substance: DIAZEPAM
     Indication: INTENTIONAL OVERDOSE
     Dosage: 10 DOSAGE FORM
     Route: 048
     Dates: start: 20190319, end: 20190319
  2. LORMETAZEPAM [Concomitant]
     Active Substance: LORMETAZEPAM
     Indication: PRODUCT USED FOR UNKNOWN INDICATION
     Dosage: UNK
     Route: 065
  3. MIRTAZAPINE. [Concomitant]
     Active Substance: MIRTAZAPINE
     Indication: PRODUCT USED FOR UNKNOWN INDICATION
     Dosage: UNK
     Route: 065
  4. ALIMEMAZINE [Suspect]
     Active Substance: TRIMEPRAZINE
     Indication: PRODUCT USED FOR UNKNOWN INDICATION
     Dosage: UNK
     Route: 048
     Dates: end: 20190320
  5. LOXAPINE. [Suspect]
     Active Substance: LOXAPINE
     Indication: PRODUCT USED FOR UNKNOWN INDICATION
     Dosage: UNK
     Route: 048
     Dates: end: 20190320
  6. QUETIAPINE. [Suspect]
     Active Substance: QUETIAPINE
     Indication: INTENTIONAL OVERDOSE
     Dosage: 11.6 GRAM
     Route: 048
     Dates: start: 20190319, end: 20190319

REACTIONS (3)
  - Tachypnoea [Recovered/Resolved]
  - Tachycardia [Recovered/Resolved]
  - Coma [Recovered/Resolved]

NARRATIVE: CASE EVENT DATE: 20190320
